FAERS Safety Report 8474830-3 (Version None)
Quarter: 2012Q2

REPORT INFORMATION
  Report Type: 
  Country: None (occurrence: None)
  Receive Date: 20120628
  Receipt Date: 20120621
  Transmission Date: 20120825
  Serious: Yes (Other)
  Sender: FDA-Public Use
  Company Number: CA-BRISTOL-MYERS SQUIBB COMPANY-16284861

PATIENT
  Age: 65 Year
  Sex: Female

DRUGS (6)
  1. ARAVA [Concomitant]
  2. FOLIC ACID [Concomitant]
  3. ORENCIA [Suspect]
     Indication: RHEUMATOID ARTHRITIS
     Dosage: LAST DOSE:10-NOV-2011,20MAR2012 NO OD INF:32 1G64569 MAR2014
     Route: 042
     Dates: start: 20080606
  4. MICARDIS HCT [Concomitant]
  5. CIPROFLOXACIN HCL [Concomitant]
  6. METHOTREXATE [Concomitant]
     Route: 048

REACTIONS (2)
  - HERPES ZOSTER [None]
  - CORNEAL ABRASION [None]
